FAERS Safety Report 8917254 (Version 3)
Quarter: 2013Q2

REPORT INFORMATION
  Report Type: Spontaneous
  Country: GB (occurrence: GB)
  Receive Date: 20121119
  Receipt Date: 20130528
  Transmission Date: 20140414
  Serious: Yes (Hospitalization, Other)
  Sender: FDA-Public Use
  Company Number: GB-AMGEN-GBRSP2012072439

PATIENT
  Age: 58 Year
  Sex: Male

DRUGS (22)
  1. ENBREL [Suspect]
     Indication: RHEUMATOID ARTHRITIS
     Dosage: 50 MG, WEEKLY
     Route: 058
     Dates: start: 20120420, end: 20120519
  2. METHOTREXATE SODIUM [Suspect]
     Indication: RHEUMATOID ARTHRITIS
     Dosage: UNK
     Dates: start: 2005, end: 201011
  3. NICORANDIL [Suspect]
     Dosage: 30 MG, 2X/DAY
     Route: 048
  4. ACETYLSALICYLIC ACID [Suspect]
     Dosage: 75 MG, UNK
     Route: 048
  5. ISMN [Suspect]
     Dosage: 60 MG, UNK
  6. ATORVASTATIN CALCIUM [Concomitant]
     Dosage: 40 MG, UNK
  7. LIRAGLUTIDE [Concomitant]
     Dosage: 1.2 MG, UNK
     Route: 058
  8. AMLODIPINE [Concomitant]
     Dosage: 5 MG, UNK
  9. INSULIN [Concomitant]
     Dosage: UNK
     Route: 058
  10. BISOPROLOL [Concomitant]
     Dosage: 7.5 MG, UNK
  11. CANDESARTAN [Concomitant]
     Dosage: 2 MG, UNK
  12. FUROSEMIDE [Concomitant]
     Dosage: 40 MG, UNK
  13. NIZATIDINE [Concomitant]
     Dosage: 150 MG, UNK
  14. MORPHINE SULFATE [Concomitant]
     Dosage: 30 MG, UNK
  15. ORAMORPH [Concomitant]
     Dosage: 10MG/5ML 5 ML PRN MAX 1 HOURLY
  16. PARACETAMOL [Concomitant]
     Dosage: 11 MG PRN 4-6 HOURLY
  17. PIZOTIFEN [Concomitant]
     Dosage: 500 MUG, UNK
  18. GTN [Concomitant]
     Dosage: 400 MCG/DOSE 2 PUFFS PRN
  19. SALBUTAMOL [Concomitant]
     Dosage: 2 PUFFS PRN
  20. RIVAROXABAN [Concomitant]
     Dosage: 20 MG, UNK
     Dates: start: 201207
  21. AMITRIPTYLINE [Concomitant]
     Dosage: 20 MG, UNK
  22. GABAPENTIN [Concomitant]
     Dosage: 300 MG, UNK
     Dates: start: 201207

REACTIONS (13)
  - Angina pectoris [Recovered/Resolved]
  - Myocardial ischaemia [Unknown]
  - Aortic valve disease mixed [Unknown]
  - Chills [Unknown]
  - Troponin T increased [Unknown]
  - Pyrexia [Unknown]
  - Tonsillar ulcer [Unknown]
  - Thrombocytopenia [Unknown]
  - Cellulitis [Unknown]
  - Catheter site cellulitis [Unknown]
  - Staphylococcal infection [Unknown]
  - Chest pain [Unknown]
  - Drug ineffective [Unknown]
